FAERS Safety Report 4772334-2 (Version None)
Quarter: 2005Q3

REPORT INFORMATION
  Report Type: 
  Country: None (occurrence: None)
  Receive Date: 20050919
  Receipt Date: 20050531
  Transmission Date: 20060218
  Serious: No
  Sender: FDA-Public Use
  Company Number: US-BRISTOL-MYERS SQUIBB COMPANY-12986964

PATIENT
  Age: 1 Year
  Sex: Female
  Weight: 8 kg

DRUGS (2)
  1. AMOXICILLIN [Suspect]
     Indication: PHARYNGITIS STREPTOCOCCAL
     Dates: start: 20050516, end: 20050525
  2. AMOXICILLIN [Suspect]
     Indication: EAR INFECTION
     Dates: start: 20050516, end: 20050525

REACTIONS (4)
  - IRRITABILITY [None]
  - JOINT SWELLING [None]
  - RASH MACULAR [None]
  - SLEEP DISORDER [None]
